FAERS Safety Report 5221269-X (Version None)
Quarter: 2007Q1

REPORT INFORMATION
  Report Type: 
  Country: None (occurrence: None)
  Receive Date: 20070126
  Receipt Date: 20070115
  Transmission Date: 20070707
  Serious: Yes (Hospitalization)
  Sender: FDA-Public Use
  Company Number: FR-PFIZER INC-2006117169

PATIENT
  Sex: Male
  Weight: 70 kg

DRUGS (7)
  1. LYRICA [Suspect]
     Indication: LYME DISEASE
     Route: 048
  2. LYRICA [Suspect]
     Indication: NEURALGIA
  3. LYRICA [Suspect]
     Indication: FACIAL PALSY
  4. OXCARBAZEPINE [Concomitant]
  5. ENOXAPARIN SODIUM [Concomitant]
     Route: 058
     Dates: start: 20060908, end: 20061008
  6. MEBEVERINE [Concomitant]
     Route: 048
  7. PARACETAMOL [Concomitant]
     Route: 048

REACTIONS (2)
  - HIP SURGERY [None]
  - OEDEMA PERIPHERAL [None]
